FAERS Safety Report 17098278 (Version 1)
Quarter: 2019Q4

REPORT INFORMATION
  Report Type: Spontaneous
  Country: US (occurrence: US)
  Receive Date: 20191129
  Receipt Date: 20191129
  Transmission Date: 20200122
  Serious: Yes (Hospitalization)
  Sender: FDA-Public Use
  Company Number: None

PATIENT
  Age: 78 Year
  Sex: Male
  Weight: 96 kg

DRUGS (4)
  1. ASPIRIN 81 MG DAILY [Concomitant]
  2. ARORVASTATIN [Concomitant]
  3. WARFARIN 2 [Suspect]
     Active Substance: WARFARIN
     Dosage: ?          OTHER FREQUENCY:EVERY OTHER DAY;?
  4. WARFARIN [Suspect]
     Active Substance: WARFARIN
     Dosage: ?          OTHER FREQUENCY:EVERY OTHER DAY;?

REACTIONS (2)
  - Haematuria [None]
  - Haemoglobin decreased [None]

NARRATIVE: CASE EVENT DATE: 20191121
